FAERS Safety Report 22334970 (Version 1)
Quarter: 2023Q2

REPORT INFORMATION
  Report Type: Spontaneous
  Country: US (occurrence: None)
  Receive Date: 20230518
  Receipt Date: 20230518
  Transmission Date: 20230721
  Serious: No
  Sender: FDA-Public Use
  Company Number: US-ROCHE-3110827

PATIENT
  Age: 71 Year
  Sex: Female
  Weight: 108.51 kg

DRUGS (1)
  1. ACTEMRA [Suspect]
     Active Substance: TOCILIZUMAB
     Indication: Giant cell arteritis
     Dosage: ONGOING: YES
     Route: 058
     Dates: start: 2021

REACTIONS (5)
  - Memory impairment [Unknown]
  - Product dose omission issue [Unknown]
  - Product temperature excursion issue [Unknown]
  - Weight increased [Not Recovered/Not Resolved]
  - Stress [Unknown]

NARRATIVE: CASE EVENT DATE: 20220301
